FAERS Safety Report 21899283 (Version 10)
Quarter: 2023Q4

REPORT INFORMATION
  Report Type: Report from Study
  Country: CA (occurrence: CA)
  Receive Date: 20230123
  Receipt Date: 20231101
  Transmission Date: 20240110
  Serious: Yes (Hospitalization, Other)
  Sender: FDA-Public Use
  Company Number: CA-TAKEDA-2023TUS005877

PATIENT
  Sex: Female
  Weight: 68 kg

DRUGS (10)
  1. HUMAN IMMUNOGLOBULIN G [Suspect]
     Active Substance: HUMAN IMMUNOGLOBULIN G
     Indication: Primary immunodeficiency syndrome
     Dosage: 15 GRAM, 1/WEEK
     Route: 050
     Dates: start: 20230124
  2. HUMAN IMMUNOGLOBULIN G [Suspect]
     Active Substance: HUMAN IMMUNOGLOBULIN G
     Indication: Immunodeficiency common variable
     Dosage: 15 GRAM, 1/WEEK
     Route: 058
  3. HUMAN IMMUNOGLOBULIN G [Suspect]
     Active Substance: HUMAN IMMUNOGLOBULIN G
     Indication: Bacterial infection
     Dosage: 15 GRAM, 1/WEEK
     Route: 058
  4. HUMAN IMMUNOGLOBULIN G [Suspect]
     Active Substance: HUMAN IMMUNOGLOBULIN G
     Dosage: 15 GRAM, 1/WEEK
     Route: 058
  5. HUMAN IMMUNOGLOBULIN G [Suspect]
     Active Substance: HUMAN IMMUNOGLOBULIN G
     Dosage: 15 GRAM, 1/WEEK
     Route: 058
  6. HUMAN IMMUNOGLOBULIN G [Suspect]
     Active Substance: HUMAN IMMUNOGLOBULIN G
     Dosage: 15 GRAM, 1/WEEK
     Route: 058
  7. HUMAN IMMUNOGLOBULIN G [Suspect]
     Active Substance: HUMAN IMMUNOGLOBULIN G
     Dosage: 15 GRAM, 1/WEEK
     Route: 058
  8. HUMAN IMMUNOGLOBULIN G [Suspect]
     Active Substance: HUMAN IMMUNOGLOBULIN G
     Dosage: 17 GRAM
     Route: 065
     Dates: start: 20230301
  9. HUMAN IMMUNOGLOBULIN G [Suspect]
     Active Substance: HUMAN IMMUNOGLOBULIN G
     Dosage: 15 GRAM, 1/WEEK
     Route: 058
  10. HUMAN IMMUNOGLOBULIN G [Suspect]
     Active Substance: HUMAN IMMUNOGLOBULIN G
     Dosage: 15 GRAM, 1/WEEK
     Route: 050

REACTIONS (26)
  - Hernia [Unknown]
  - Ascites [Unknown]
  - Peripheral swelling [Unknown]
  - Groin pain [Unknown]
  - Abdominal pain [Unknown]
  - Rectal cancer [Unknown]
  - Fistula [Unknown]
  - T-lymphocyte count increased [Recovering/Resolving]
  - General physical health deterioration [Unknown]
  - CD8 lymphocytes increased [Recovering/Resolving]
  - Tooth disorder [Unknown]
  - Hepatic enzyme increased [Unknown]
  - Constipation [Unknown]
  - Axillary mass [Unknown]
  - Proctalgia [Not Recovered/Not Resolved]
  - Diarrhoea [Unknown]
  - Blood creatinine increased [Unknown]
  - Fatigue [Not Recovered/Not Resolved]
  - Poor peripheral circulation [Unknown]
  - Umbilical hernia [Unknown]
  - Cystitis [Unknown]
  - Herpes zoster [Not Recovered/Not Resolved]
  - Malaise [Unknown]
  - Pain [Recovering/Resolving]
  - Incorrect dose administered [Unknown]
  - Device difficult to use [Unknown]

NARRATIVE: CASE EVENT DATE: 20230101
